FAERS Safety Report 13819354 (Version 1)
Quarter: 2017Q3

REPORT INFORMATION
  Report Type: Spontaneous
  Country: AU (occurrence: AU)
  Receive Date: 20170801
  Receipt Date: 20170801
  Transmission Date: 20171127
  Serious: Yes (Other)
  Sender: FDA-Public Use
  Company Number: AU-JNJFOC-20170615636

PATIENT
  Age: 10 Year
  Sex: Female
  Weight: 30 kg

DRUGS (2)
  1. REMICADE [Suspect]
     Active Substance: INFLIXIMAB
     Indication: CROHN^S DISEASE
     Route: 042
  2. REMICADE [Suspect]
     Active Substance: INFLIXIMAB
     Indication: CROHN^S DISEASE
     Dosage: APPROXIMATELY 3 AND HALF HOURS
     Route: 042

REACTIONS (5)
  - Drug ineffective [Unknown]
  - Off label use [Unknown]
  - Surgery [Unknown]
  - Psoriasis [Unknown]
  - Product use issue [Unknown]
